FAERS Safety Report 5917464-4 (Version None)
Quarter: 2008Q4

REPORT INFORMATION
  Report Type: 
  Country: None (occurrence: None)
  Receive Date: 20081014
  Receipt Date: 20081006
  Transmission Date: 20090506
  Serious: Yes (Disabling)
  Sender: FDA-Public Use
  Company Number: JP-ASTRAZENECA-2008AP03970

PATIENT
  Age: 57 Year
  Sex: Female

DRUGS (16)
  1. FOSCAVIR [Suspect]
     Indication: CYTOMEGALOVIRUS CHORIORETINITIS
     Route: 041
     Dates: start: 20070406, end: 20070418
  2. FOSCAVIR [Suspect]
     Route: 041
     Dates: start: 20070419, end: 20070501
  3. FOSCAVIR [Suspect]
     Route: 041
     Dates: start: 20070502, end: 20070508
  4. FOSCAVIR [Suspect]
     Route: 041
     Dates: start: 20070606, end: 20070607
  5. FOSCAVIR [Suspect]
     Route: 041
     Dates: start: 20070608, end: 20070608
  6. FOSCAVIR [Suspect]
     Route: 041
     Dates: start: 20070609, end: 20070614
  7. ZITHROMAX [Concomitant]
     Indication: ANTIBIOTIC PROPHYLAXIS
     Route: 048
     Dates: start: 20070406, end: 20080331
  8. COTRIM [Concomitant]
     Indication: PNEUMONIA
     Route: 048
     Dates: start: 20070406, end: 20080331
  9. NORVASC [Concomitant]
     Indication: RENAL DISORDER
     Route: 048
     Dates: start: 20070430, end: 20080331
  10. LENDORMIN [Concomitant]
     Indication: INSOMNIA
     Route: 048
     Dates: start: 20070506, end: 20080331
  11. STOCRIN [Concomitant]
     Dosage: FREQUENCY UNKNOWN
     Route: 048
     Dates: start: 20070514, end: 20080331
  12. EPZICOM [Concomitant]
     Route: 048
     Dates: start: 20070514, end: 20080331
  13. ITRIZOLE [Concomitant]
     Indication: ANTIFUNGAL PROPHYLAXIS
     Route: 065
     Dates: start: 20070515, end: 20070614
  14. ITRIZOLE [Concomitant]
     Route: 065
     Dates: start: 20070626, end: 20080331
  15. VALGANCICLOVIR HCL [Concomitant]
     Indication: CYTOMEGALOVIRUS CHORIORETINITIS
     Route: 048
     Dates: start: 20070517, end: 20070522
  16. DENOSINE [Concomitant]
     Indication: CYTOMEGALOVIRUS CHORIORETINITIS
     Route: 041
     Dates: start: 20070522, end: 20070605

REACTIONS (2)
  - BRONCHOPULMONARY ASPERGILLOSIS [None]
  - CYTOMEGALOVIRUS CHORIORETINITIS [None]
